FAERS Safety Report 24165556 (Version 1)
Quarter: 2024Q3

REPORT INFORMATION
  Report Type: Spontaneous
  Country: US (occurrence: US)
  Receive Date: 20240802
  Receipt Date: 20240802
  Transmission Date: 20241017
  Serious: No
  Sender: VERRICA PHARMACEUTICALS
  Company Number: US-VERRICA PHARMACEUTICALS INC.-2024VER000025

PATIENT
  Age: 4 Year
  Sex: Male

DRUGS (2)
  1. YCANTH [Suspect]
     Active Substance: CANTHARIDIN
     Indication: Skin lesion
     Dosage: AS DIRECTED
     Route: 061
     Dates: start: 20240528
  2. BACTRIM [Concomitant]
     Active Substance: SULFAMETHOXAZOLE\TRIMETHOPRIM
     Indication: Product used for unknown indication
     Dosage: UNK
     Route: 065

REACTIONS (1)
  - Application site pain [Recovering/Resolving]

NARRATIVE: CASE EVENT DATE: 20240528
